FAERS Safety Report 4877885-8 (Version None)
Quarter: 2006Q1

REPORT INFORMATION
  Report Type: 
  Country: None (occurrence: None)
  Receive Date: 20060109
  Receipt Date: 20051227
  Transmission Date: 20060701
  Serious: Yes (Hospitalization, Other)
  Sender: FDA-Public Use
  Company Number: HQWYE160603JAN06

PATIENT
  Age: 50 Year
  Sex: Male

DRUGS (6)
  1. ADVIL [Suspect]
     Indication: TOOTHACHE
     Dosage: 1 TABLET 1X PER 1 DAY, ORAL
     Route: 048
     Dates: start: 20050926, end: 20050927
  2. ACETAMINOPHEN [Suspect]
     Indication: TOOTHACHE
     Dosage: SEE IMAGE
     Dates: start: 20050927, end: 20050927
  3. ACETAMINOPHEN [Suspect]
     Indication: TOOTHACHE
     Dosage: SEE IMAGE
     Dates: start: 20050928, end: 20050929
  4. EFFERALGAN CODEINE (PARACETAMOL/CODEINE PHOSPHATE,) [Suspect]
     Indication: TOOTHACHE
     Dosage: SEE IMAGE
     Dates: start: 20050924, end: 20050924
  5. EFFERALGAN CODEINE (PARACETAMOL/CODEINE PHOSPHATE,) [Suspect]
     Indication: TOOTHACHE
     Dosage: SEE IMAGE
     Dates: start: 20050927, end: 20050929
  6. SIMVASTATIN [Suspect]
     Indication: HYPERCHOLESTEROLAEMIA
     Dosage: 20 MG 1X PER 1 DAY
     Dates: start: 20050927, end: 20050930

REACTIONS (4)
  - HEPATITIS CHOLESTATIC [None]
  - MUSCLE SPASMS [None]
  - MYALGIA [None]
  - VERTIGO [None]
